FAERS Safety Report 15711106 (Version 1)
Quarter: 2018Q4

REPORT INFORMATION
  Report Type: Spontaneous
  Country: CZ (occurrence: CZ)
  Receive Date: 20181211
  Receipt Date: 20181211
  Transmission Date: 20190205
  Serious: Yes (Other)
  Sender: FDA-Public Use
  Company Number: CZ-TEVA-2018-CZ-985280

PATIENT
  Sex: Female

DRUGS (3)
  1. TRIAMCINOLONE [Suspect]
     Active Substance: TRIAMCINOLONE
     Route: 065
  2. ELOCOM [Suspect]
     Active Substance: MOMETASONE FUROATE
     Route: 003
  3. LOCOID [Suspect]
     Active Substance: HYDROCORTISONE BUTYRATE
     Route: 065

REACTIONS (6)
  - Skin infection [Recovering/Resolving]
  - Skin burning sensation [Unknown]
  - Localised infection [Recovered/Resolved with Sequelae]
  - Application site erythema [Unknown]
  - Fungal infection [Not Recovered/Not Resolved]
  - Contraindicated product prescribed [Recovered/Resolved with Sequelae]

NARRATIVE: CASE EVENT DATE: 2018
